FAERS Safety Report 24590250 (Version 3)
Quarter: 2024Q4

REPORT INFORMATION
  Report Type: Report from Study
  Country: US (occurrence: US)
  Receive Date: 20241107
  Receipt Date: 20241128
  Transmission Date: 20250115
  Serious: Yes (Life-Threatening, Hospitalization)
  Sender: UCB
  Company Number: US-UCBSA-2024056509

PATIENT
  Sex: Male

DRUGS (1)
  1. BIMEKIZUMAB [Suspect]
     Active Substance: BIMEKIZUMAB
     Indication: Psoriasis
     Dosage: 320 MILLIGRAM, EV 4 WEEKS
     Route: 058
     Dates: start: 20240812, end: 20241018

REACTIONS (6)
  - Diarrhoea haemorrhagic [Recovered/Resolved]
  - Pyrexia [Recovered/Resolved]
  - Abdominal pain [Recovered/Resolved]
  - Infection [Recovering/Resolving]
  - Depressed level of consciousness [Recovering/Resolving]
  - Gastrointestinal disorder [Not Recovered/Not Resolved]

NARRATIVE: CASE EVENT DATE: 20240101
